FAERS Safety Report 24004294 (Version 1)
Quarter: 2024Q2

REPORT INFORMATION
  Report Type: Spontaneous
  Country: US (occurrence: US)
  Receive Date: 20240624
  Receipt Date: 20240624
  Transmission Date: 20240716
  Serious: No
  Sender: FDA-Public Use
  Company Number: US-BRISTOL-MYERS SQUIBB COMPANY-2024-100935

PATIENT
  Age: 35 Year
  Sex: Female

DRUGS (1)
  1. REBLOZYL [Suspect]
     Active Substance: LUSPATERCEPT-AAMT
     Indication: Product used for unknown indication
     Dosage: STRENGTH: 75 MG, 25 MG?FREQUENCY: INJECT 99MG SUBCUTANEOUSLY EVERY 3 WEEKS.
     Route: 058

REACTIONS (1)
  - Weight decreased [Unknown]
